FAERS Safety Report 13917602 (Version 12)
Quarter: 2018Q2

REPORT INFORMATION
  Report Type: Spontaneous
  Country: US (occurrence: US)
  Receive Date: 20170829
  Receipt Date: 20180423
  Transmission Date: 20180711
  Serious: Yes (Other)
  Sender: FDA-Public Use
  Company Number: PHEH2017US027613

PATIENT
  Sex: Male

DRUGS (1)
  1. TASIGNA [Suspect]
     Active Substance: NILOTINIB
     Indication: CHRONIC MYELOID LEUKAEMIA
     Dosage: 2 DF, BID
     Route: 048
     Dates: start: 20110623, end: 20130828

REACTIONS (96)
  - Injury [Unknown]
  - Emotional distress [Unknown]
  - Swelling [Recovering/Resolving]
  - Nasal inflammation [Unknown]
  - Palpitations [Unknown]
  - Tachycardia [Unknown]
  - Asthenia [Unknown]
  - Abdominal pain [Unknown]
  - Headache [Unknown]
  - Erythema [Unknown]
  - Pericardial effusion [Unknown]
  - Obesity [Unknown]
  - Cardiomegaly [Unknown]
  - Libido decreased [Unknown]
  - Sensory loss [Unknown]
  - Carotid artery stenosis [Unknown]
  - Embolic stroke [Unknown]
  - Left atrial enlargement [Unknown]
  - Cerebrovascular accident [Unknown]
  - Sinusitis [Unknown]
  - Retching [Unknown]
  - Dysphagia [Unknown]
  - Vitamin B12 deficiency [Unknown]
  - Atelectasis [Unknown]
  - Facial paresis [Unknown]
  - Subcutaneous emphysema [Unknown]
  - Syncope [Unknown]
  - Haematoma [Unknown]
  - Hypercholesterolaemia [Unknown]
  - Neck pain [Unknown]
  - Ischaemic stroke [Unknown]
  - Cerebral infarction [Unknown]
  - Upper-airway cough syndrome [Unknown]
  - Hypogonadism [Unknown]
  - Sinus congestion [Unknown]
  - Torticollis [Unknown]
  - Essential hypertension [Unknown]
  - Herpes zoster [Unknown]
  - Dizziness [Unknown]
  - Dyspnoea exertional [Unknown]
  - Paraesthesia [Not Recovered/Not Resolved]
  - Hypoaesthesia [Not Recovered/Not Resolved]
  - Pharyngitis [Unknown]
  - Arthralgia [Unknown]
  - Amaurosis fugax [Recovered/Resolved]
  - Mitral valve incompetence [Unknown]
  - Pleural effusion [Unknown]
  - Dysarthria [Unknown]
  - Cough [Unknown]
  - Erectile dysfunction [Unknown]
  - Flushing [Unknown]
  - Malaise [Unknown]
  - Cerebral artery occlusion [Unknown]
  - Tricuspid valve incompetence [Unknown]
  - Left ventricular hypertrophy [Unknown]
  - Cardiac output decreased [Unknown]
  - Speech disorder [Unknown]
  - Snoring [Unknown]
  - Vitamin D deficiency [Unknown]
  - Chest pain [Unknown]
  - Upper respiratory tract infection [Recovering/Resolving]
  - Hypothyroidism [Unknown]
  - Wheezing [Unknown]
  - Fatigue [Unknown]
  - Anxiety [Unknown]
  - Arteriosclerosis [Unknown]
  - Carotid artery thrombosis [Unknown]
  - Hemiparesis [Unknown]
  - Small intestinal obstruction [Unknown]
  - Gait disturbance [Unknown]
  - Spinal osteoarthritis [Unknown]
  - Lymphadenitis [Unknown]
  - Sleep apnoea syndrome [Unknown]
  - Vertigo positional [Unknown]
  - Joint stiffness [Unknown]
  - Back pain [Unknown]
  - Nausea [Unknown]
  - Hyperlipidaemia [Unknown]
  - Vertigo [Unknown]
  - Bronchitis [Unknown]
  - Pyrexia [Unknown]
  - Confusional state [Unknown]
  - Encephalomalacia [Unknown]
  - Cardiac failure congestive [Unknown]
  - Transient ischaemic attack [Unknown]
  - Urine flow decreased [Unknown]
  - Chronic paroxysmal hemicrania [Unknown]
  - Sleep disorder [Unknown]
  - Lymphocytosis [Unknown]
  - Swelling face [Unknown]
  - Gastrooesophageal reflux disease [Unknown]
  - Dyspnoea [Unknown]
  - Muscle spasms [Unknown]
  - Anaemia [Unknown]
  - Constipation [Unknown]
  - Vomiting [Unknown]
